FAERS Safety Report 22168224 (Version 2)
Quarter: 2023Q2

REPORT INFORMATION
  Report Type: Spontaneous
  Country: US (occurrence: US)
  Receive Date: 20230403
  Receipt Date: 20230407
  Transmission Date: 20230721
  Serious: No
  Sender: FDA-Public Use
  Company Number: US-PFIZER INC-202300135829

PATIENT
  Age: 65 Year
  Sex: Male
  Weight: 109.77 kg

DRUGS (1)
  1. DEPO-TESTOSTERONE [Suspect]
     Active Substance: TESTOSTERONE CYPIONATE
     Indication: Hypothalamo-pituitary disorder
     Dosage: 75 MG, EVERY TWO WEEKS (BIWEEKLY)
     Dates: start: 20230227

REACTIONS (3)
  - Liquid product physical issue [Unknown]
  - Blood testosterone increased [Unknown]
  - Red blood cell count increased [Unknown]

NARRATIVE: CASE EVENT DATE: 20230101
